FAERS Safety Report 7313289-6 (Version None)
Quarter: 2011Q1

REPORT INFORMATION
  Report Type: 
  Country: None (occurrence: None)
  Receive Date: 20110217
  Receipt Date: 20110217
  Transmission Date: 20110831
  Serious: No
  Sender: FDA-Public Use
  Company Number: None

PATIENT
  Age: 7 Year
  Sex: Male
  Weight: 24.9478 kg

DRUGS (1)
  1. SINGULAIR [Suspect]
     Indication: ASTHMA
     Dosage: 5MG DAILY PO
     Route: 048
     Dates: start: 20070101, end: 20110103

REACTIONS (5)
  - MOOD SWINGS [None]
  - AGITATION [None]
  - SUICIDAL IDEATION [None]
  - EDUCATIONAL PROBLEM [None]
  - AGGRESSION [None]
